FAERS Safety Report 16597010 (Version 1)
Quarter: 2019Q3

REPORT INFORMATION
  Report Type: Spontaneous
  Country: US (occurrence: US)
  Receive Date: 20190605
  Receipt Date: 20190605
  Transmission Date: 20191004
  Serious: Yes (Hospitalization)
  Sender: FDA-Public Use
  Company Number: None

PATIENT
  Age: 19 Year
  Sex: Female

DRUGS (11)
  1. AQUADEKS [Concomitant]
     Active Substance: MINERALS\VITAMINS
  2. PHYTONADIONE. [Concomitant]
     Active Substance: PHYTONADIONE
  3. MUPIROCIN. [Concomitant]
     Active Substance: MUPIROCIN
  4. LINEZOLID. [Concomitant]
     Active Substance: LINEZOLID
  5. VANCOMYCIN [Concomitant]
     Active Substance: VANCOMYCIN
  6. BETHKIS [Suspect]
     Active Substance: TOBRAMYCIN
     Indication: CYSTIC FIBROSIS
     Route: 055
     Dates: start: 20190605
  7. PROVENTIL HFA [Concomitant]
     Active Substance: ALBUTEROL SULFATE
  8. SOD CHL 7% 4ML [Concomitant]
     Active Substance: SODIUM CHLORIDE
  9. CLARITHROMYCIN. [Concomitant]
     Active Substance: CLARITHROMYCIN
  10. ALBUTEROL. [Concomitant]
     Active Substance: ALBUTEROL
  11. COLISTIMETHATE [Concomitant]
     Active Substance: COLISTIMETHATE SODIUM

REACTIONS (1)
  - Condition aggravated [None]

NARRATIVE: CASE EVENT DATE: 2019
